FAERS Safety Report 13165156 (Version 1)
Quarter: 2017Q1

REPORT INFORMATION
  Report Type: Spontaneous
  Country: US (occurrence: US)
  Receive Date: 20170130
  Receipt Date: 20170130
  Transmission Date: 20170428
  Serious: No
  Sender: FDA-Public Use
  Company Number: US-ALLERGAN-1649475

PATIENT
  Age: 18 Year
  Sex: Female

DRUGS (2)
  1. LAYOLIS FE [Suspect]
     Active Substance: ETHINYL ESTRADIOL\NORETHINDRONE
     Indication: MENORRHAGIA
  2. LAYOLIS FE [Suspect]
     Active Substance: ETHINYL ESTRADIOL\NORETHINDRONE
     Indication: OLIGOMENORRHOEA
     Dosage: 1 TABLET, DAILY
     Route: 048
     Dates: start: 201601

REACTIONS (1)
  - Rash pruritic [Not Recovered/Not Resolved]
